FAERS Safety Report 9708895 (Version 3)
Quarter: 2013Q4

REPORT INFORMATION
  Report Type: Spontaneous
  Country: US (occurrence: US)
  Receive Date: 20131125
  Receipt Date: 20131227
  Transmission Date: 20140711
  Serious: No
  Sender: FDA-Public Use
  Company Number: US-GILEAD-2013-0076263

PATIENT
  Age: 40 Year
  Sex: Male
  Weight: 78.46 kg

DRUGS (13)
  1. COMPLERA [Suspect]
     Indication: HIV INFECTION
     Dosage: 1 DF, QD
     Route: 048
     Dates: start: 20130820
  2. ISENTRESS [Concomitant]
     Dosage: UNK, BID
  3. ALENDRONATE SODIUM [Concomitant]
     Indication: OSTEOPOROSIS
     Dosage: 70 MG, Q1WK
  4. IBUPROFEN [Concomitant]
     Dosage: 60 MG, UNK
  5. MEGESTROL ACETATE [Concomitant]
     Dosage: UNK
  6. SUMATRIPTAN SUCCINATE [Concomitant]
     Indication: MIGRAINE
     Dosage: 50 MG, PRN
  7. FLONASE                            /00908302/ [Concomitant]
  8. DEXTROAMPHETAMINE                  /00016601/ [Concomitant]
     Indication: ATTENTION DEFICIT/HYPERACTIVITY DISORDER
     Dosage: 10 MG, BID
  9. LORAZEPAM [Concomitant]
     Dosage: 1 MG, TID
  10. LISINOPRIL [Concomitant]
     Dosage: 20 MG, QD
  11. LAMOTRIGINE [Concomitant]
     Indication: BIPOLAR I DISORDER
     Dosage: 25 MG, BID
  12. TRAZODONE HCL [Concomitant]
     Indication: BIPOLAR I DISORDER
     Dosage: 100 MG, QHS
  13. VIAGRA [Concomitant]
     Dosage: UNK MG, UNK

REACTIONS (1)
  - Skin striae [Recovered/Resolved with Sequelae]
